FAERS Safety Report 21822155 (Version 1)
Quarter: 2023Q1

REPORT INFORMATION
  Report Type: Spontaneous
  Country: US (occurrence: None)
  Receive Date: 20230104
  Receipt Date: 20230104
  Transmission Date: 20230418
  Serious: Yes (Hospitalization)
  Sender: FDA-Public Use
  Company Number: None

PATIENT
  Sex: Female

DRUGS (1)
  1. TASIGNA [Suspect]
     Active Substance: NILOTINIB
     Indication: Chronic myeloid leukaemia
     Dosage: 150 MG ORAL??TAKE TWO CAPSULES BY MOUTH TWICE DAILY. NO FOOD 2 HOURS BEFORE OR 1 HOUR AFTER DOSE
     Route: 048
     Dates: start: 20220328

REACTIONS (1)
  - Therapy interrupted [None]
